FAERS Safety Report 4485573-5 (Version None)
Quarter: 2004Q4

REPORT INFORMATION
  Report Type: 
  Country: None (occurrence: None)
  Receive Date: 20041026
  Receipt Date: 20041008
  Transmission Date: 20050328
  Serious: Yes (Other)
  Sender: FDA-Public Use
  Company Number: GB-MERCK-0410GBR00097

PATIENT
  Sex: Male

DRUGS (7)
  1. ZOCOR [Suspect]
     Indication: MYOCARDIAL ISCHAEMIA
     Route: 048
     Dates: start: 20040301, end: 20040101
  2. ZOCOR [Suspect]
     Route: 048
     Dates: start: 20040101
  3. ZOCOR [Suspect]
     Route: 048
     Dates: start: 20040101, end: 20040101
  4. ZOCOR [Suspect]
     Route: 048
     Dates: start: 20040101, end: 20040101
  5. ATORVASTATIN CALCIUM [Suspect]
     Indication: MYOCARDIAL ISCHAEMIA
     Route: 048
     Dates: start: 20040401
  6. ASPIRIN [Concomitant]
     Indication: MYOCARDIAL ISCHAEMIA
     Route: 048
     Dates: start: 20030101
  7. CLOPIDOGREL BISULFATE [Concomitant]
     Indication: MYOCARDIAL ISCHAEMIA
     Route: 048
     Dates: start: 20030101

REACTIONS (1)
  - BRONCHOSPASM [None]
